FAERS Safety Report 21831927 (Version 1)
Quarter: 2023Q1

REPORT INFORMATION
  Report Type: Spontaneous
  Country: US (occurrence: None)
  Receive Date: 20230106
  Receipt Date: 20230106
  Transmission Date: 20230417
  Serious: Yes (Other)
  Sender: FDA-Public Use
  Company Number: None

PATIENT
  Sex: Female

DRUGS (1)
  1. AUBAGIO [Suspect]
     Active Substance: TERIFLUNOMIDE
     Dosage: 14MG DAILY ORAL?
     Route: 048

REACTIONS (8)
  - Fall [None]
  - Face injury [None]
  - Lip injury [None]
  - Swelling face [None]
  - Pain [None]
  - Erythema [None]
  - Gait disturbance [None]
  - Condition aggravated [None]
